FAERS Safety Report 13681782 (Version 1)
Quarter: 2017Q2

REPORT INFORMATION
  Report Type: Spontaneous
  Country: US (occurrence: US)
  Receive Date: 20170622
  Receipt Date: 20170622
  Transmission Date: 20170830
  Serious: No
  Sender: FDA-Public Use
  Company Number: None

PATIENT
  Age: 63 Year
  Sex: Female
  Weight: 91.35 kg

DRUGS (7)
  1. TEGRETOL [Concomitant]
     Active Substance: CARBAMAZEPINE
  2. LIPITOR [Concomitant]
     Active Substance: ATORVASTATIN CALCIUM
  3. ATENOLOL. [Concomitant]
     Active Substance: ATENOLOL
  4. AMITRYPTALINE [Concomitant]
     Active Substance: AMITRIPTYLINE
  5. LASTACAFT [Suspect]
     Active Substance: ALCAFTADINE
     Indication: SEASONAL ALLERGY
     Dosage: ?          QUANTITY:2 DROP(S);?
     Route: 047
  6. LASIX [Concomitant]
     Active Substance: FUROSEMIDE
  7. ADVIL [Concomitant]
     Active Substance: IBUPROFEN

REACTIONS (4)
  - Burning sensation [None]
  - Eyelid oedema [None]
  - Erythema [None]
  - Face oedema [None]

NARRATIVE: CASE EVENT DATE: 20170622
